FAERS Safety Report 24648877 (Version 1)
Quarter: 2024Q4

REPORT INFORMATION
  Report Type: Spontaneous
  Country: BE (occurrence: BE)
  Receive Date: 20241121
  Receipt Date: 20241121
  Transmission Date: 20250115
  Serious: Yes (Hospitalization, Other)
  Sender: NOVARTIS
  Company Number: BE-ALXN-202411EEA005189BE

PATIENT
  Sex: Female

DRUGS (6)
  1. EXJADE [Suspect]
     Active Substance: DEFERASIROX
     Indication: Product used for unknown indication
     Dosage: UNK
     Route: 065
  2. EXJADE [Suspect]
     Active Substance: DEFERASIROX
     Dosage: UNK
     Route: 065
  3. SOLIRIS [Suspect]
     Active Substance: ECULIZUMAB
     Indication: Paroxysmal nocturnal haemoglobinuria
     Dosage: UNK
     Route: 065
     Dates: end: 2021
  4. SOLIRIS [Suspect]
     Active Substance: ECULIZUMAB
     Dosage: UNK
     Route: 065
     Dates: end: 2021
  5. SOLIRIS [Suspect]
     Active Substance: ECULIZUMAB
     Dosage: UNK
     Route: 065
     Dates: end: 2021
  6. SOLIRIS [Suspect]
     Active Substance: ECULIZUMAB
     Dosage: UNK
     Route: 065
     Dates: end: 2021

REACTIONS (6)
  - Infection [Unknown]
  - Haemolysis [Unknown]
  - Neutropenia [Unknown]
  - Anaemia [Unknown]
  - Iron overload [Unknown]
  - Diarrhoea [Unknown]

NARRATIVE: CASE EVENT DATE: 20120101
